FAERS Safety Report 9358192 (Version 1)
Quarter: 2013Q2

REPORT INFORMATION
  Report Type: Spontaneous
  Country: US (occurrence: US)
  Receive Date: 20130620
  Receipt Date: 20130620
  Transmission Date: 20140414
  Serious: Yes (Other)
  Sender: FDA-Public Use
  Company Number: US-US-EMD SERONO, INC.-7116014

PATIENT
  Age: 19 Year
  Sex: Female
  Weight: 134 kg

DRUGS (3)
  1. REBIF [Suspect]
     Indication: MULTIPLE SCLEROSIS
     Route: 058
     Dates: start: 201111, end: 201209
  2. TOPAMAX [Concomitant]
     Indication: MIGRAINE
  3. TOPAMAX [Concomitant]
     Indication: CONVULSION

REACTIONS (3)
  - Convulsion [Unknown]
  - Dizziness [Not Recovered/Not Resolved]
  - Rash erythematous [Recovered/Resolved]
